FAERS Safety Report 9832240 (Version 7)
Quarter: 2015Q2

REPORT INFORMATION
  Report Type: Report from Study
  Country: US (occurrence: US)
  Receive Date: 20140121
  Receipt Date: 20150610
  Transmission Date: 20150821
  Serious: Yes (Other)
  Sender: FDA-Public Use
  Company Number: US-ALEXION-A201400050

PATIENT

DRUGS (4)
  1. ASPIRIN. [Concomitant]
     Active Substance: ASPIRIN
     Indication: ANTICOAGULANT THERAPY
     Dosage: 81 MG, QD
     Route: 065
     Dates: start: 20100902
  2. SOLIRIS [Suspect]
     Active Substance: ECULIZUMAB
     Indication: PAROXYSMAL NOCTURNAL HAEMOGLOBINURIA
     Dosage: 1200 MG, Q2W
     Route: 042
     Dates: start: 20080722
  3. SOLIRIS [Suspect]
     Active Substance: ECULIZUMAB
     Dosage: UNK
     Route: 042
  4. PREDNISONE. [Concomitant]
     Active Substance: PREDNISONE
     Indication: STEROID THERAPY
     Dosage: 15 MG, QD
     Route: 065
     Dates: start: 20100101

REACTIONS (10)
  - Blood creatinine increased [Recovering/Resolving]
  - Bone marrow failure [Unknown]
  - Thrombosis [Unknown]
  - Fatigue [Unknown]
  - Renal function test abnormal [Unknown]
  - Dialysis [Unknown]
  - Cough [Recovering/Resolving]
  - Cataract operation [Recovered/Resolved]
  - Thyroid cancer [Unknown]
  - Influenza [Recovering/Resolving]

NARRATIVE: CASE EVENT DATE: 20100402
